FAERS Safety Report 4717135-6 (Version None)
Quarter: 2005Q3

REPORT INFORMATION
  Report Type: 
  Country: None (occurrence: None)
  Receive Date: 20050719
  Receipt Date: 20050628
  Transmission Date: 20060218
  Serious: Yes (Disabling)
  Sender: FDA-Public Use
  Company Number: US-GLAXOSMITHKLINE-A0564655A

PATIENT
  Age: 13 Year
  Sex: Female
  Weight: 60.9 kg

DRUGS (5)
  1. ADVAIR DISKUS 100/50 [Suspect]
     Indication: ASTHMA
     Dosage: 1PUFF PER DAY
     Route: 055
  2. SINGULAIR [Concomitant]
     Indication: ASTHMA
     Dosage: 5MG AT NIGHT
     Route: 048
     Dates: start: 20021101
  3. ALLERGEN [Concomitant]
     Indication: MULTIPLE ALLERGIES
     Dates: start: 20040101
  4. ALBUTEROL [Concomitant]
  5. FLONASE [Concomitant]
     Route: 045
     Dates: start: 20040101

REACTIONS (1)
  - MYALGIA [None]
